FAERS Safety Report 22345288 (Version 1)
Quarter: 2023Q2

REPORT INFORMATION
  Report Type: Spontaneous
  Country: US (occurrence: US)
  Receive Date: 20230519
  Receipt Date: 20230519
  Transmission Date: 20230722
  Serious: No
  Sender: FDA-Public Use
  Company Number: US-PFIZER INC-202300194064

PATIENT
  Age: 44 Year
  Sex: Female

DRUGS (2)
  1. IBRANCE [Suspect]
     Active Substance: PALBOCICLIB
     Indication: Breast cancer metastatic
     Dosage: DAYS 1-21, EVERY 28 DAYS
     Route: 048
     Dates: start: 2018
  2. FASLODEX [Concomitant]
     Active Substance: FULVESTRANT
     Dosage: 250MCG/5 ML

REACTIONS (1)
  - Tumour marker increased [Unknown]
